FAERS Safety Report 24296291 (Version 2)
Quarter: 2024Q4

REPORT INFORMATION
  Report Type: Spontaneous
  Country: FR (occurrence: FR)
  Receive Date: 20240909
  Receipt Date: 20241017
  Transmission Date: 20250114
  Serious: Yes (Death, Hospitalization, Other)
  Sender: ASTELLAS
  Company Number: FR-ASTELLAS-2024-AER-003756

PATIENT
  Age: 79 Year
  Sex: Male
  Weight: 62 kg

DRUGS (36)
  1. XOSPATA [Suspect]
     Active Substance: GILTERITINIB
     Indication: Acute myeloid leukaemia
     Dosage: 3 TABLETS AT 12:00PM DAILY FOR 90 DAYS DURING MEALS, PER OS
     Route: 048
     Dates: start: 20240613, end: 20240712
  2. XOSPATA [Suspect]
     Active Substance: GILTERITINIB
     Dosage: 3 TABLETS DAILY, PER OS
     Route: 048
     Dates: start: 20240807
  3. AMIODARONE [Concomitant]
     Active Substance: AMIODARONE
     Indication: Product used for unknown indication
     Dosage: 1 TABLET IN THE MORNING AT 08:00 EVERY DAY EXCEPT SATURDAY, SUNDAY FOR 90 DAYS
     Route: 048
     Dates: start: 20240619, end: 20240709
  4. AMIODARONE [Concomitant]
     Active Substance: AMIODARONE
     Dosage: 1 TABLET IN THE MORNING AT 08:00 EVERY DAY FOR 28 DAYS
     Route: 048
     Dates: start: 20240716, end: 20240727
  5. AMIODARONE [Concomitant]
     Active Substance: AMIODARONE
     Dosage: 1 TABLET IN THE MORNING AT 08:00 EVERY DAY EXCEPT SATURDAY, SUNDAY FOR 28 DAYS
     Route: 048
     Dates: start: 20240728, end: 20240807
  6. LEVOTHYROXINE [Concomitant]
     Active Substance: LEVOTHYROXINE
     Indication: Product used for unknown indication
     Dosage: 1 TABLET IN THE MORNING AT 08:00 EVERY DAY FOR 90 DAYS, ON AN EMPTY STOMACH BEFORE BREAKFAST
     Route: 048
     Dates: start: 20240619, end: 20240709
  7. LEVOTHYROXINE [Concomitant]
     Active Substance: LEVOTHYROXINE
     Dosage: 1 TABLET IN THE MORNING AT 08:00 EVERY DAY FOR 90 DAYS, ON AN EMPTY STOMACH BEFORE BREAKFAST
     Route: 048
     Dates: start: 20240716, end: 20240807
  8. DYMISTA [Concomitant]
     Active Substance: AZELASTINE HYDROCHLORIDE\FLUTICASONE PROPIONATE
     Indication: Product used for unknown indication
     Dosage: 1 SPRAY IN EACH NOSTRIL IN THE MORNING AT 08:00 EVERY DAY FOR 90 DAYS
     Route: 045
     Dates: start: 20240619, end: 20240709
  9. DYMISTA [Concomitant]
     Active Substance: AZELASTINE HYDROCHLORIDE\FLUTICASONE PROPIONATE
     Dosage: 1 SPRAY IN EACH NOSTRIL IN THE MORNING AT 08:00 EVERY DAY FOR 90 DAYS
     Route: 045
     Dates: start: 20240716, end: 20240807
  10. CLINUTREN DESSERT GOURMAND [Concomitant]
     Indication: Product used for unknown indication
     Dosage: 1 POT IN THE MORNING AT 10:00 AM DAILY FOR 90 DAYS; 200GX4
     Route: 048
     Dates: start: 20240619, end: 20240709
  11. CLINUTREN DESSERT GOURMAND [Concomitant]
     Dosage: 1 POT IN THE MORNING AT 10:00 AM DAILY FOR 90 DAYS; 200GX4
     Route: 048
     Dates: start: 20240716, end: 20240807
  12. ATOVAQUONE [Concomitant]
     Active Substance: ATOVAQUONE
     Indication: Product used for unknown indication
     Dosage: 750 MG IN THE MORNING AT 08:00, 750 MG IN THE EVENING AT 18:00 DAILY FOR 90 DAYS
     Route: 048
     Dates: start: 20240619, end: 20240709
  13. ATOVAQUONE [Concomitant]
     Active Substance: ATOVAQUONE
     Dosage: 750 MG IN THE MORNING AT 08:00, 750 MG IN THE EVENING AT 18:00 DAILY FOR 90 DAYS
     Route: 048
     Dates: start: 20240716, end: 20240807
  14. NORMACOL LAVAMENT [Concomitant]
     Indication: Constipation
     Dosage: 1 ENEMA IN THE MORNING AT 08:00 EVERY DAY FOR 90 DAYS; IF CONSTIPATION }3 DAYS
     Route: 054
     Dates: start: 20240619, end: 20240709
  15. NORMACOL LAVAMENT [Concomitant]
     Dosage: 1 ENEMA IN THE MORNING AT 08:00 EVERY DAY FOR 90 DAYS; IF CONSTIPATION }3 DAYS
     Route: 054
     Dates: start: 20240716, end: 20240807
  16. LACTULOSE [Concomitant]
     Active Substance: LACTULOSE
     Indication: Constipation
     Dosage: 1 SACHET MORNING AT 08:00, 1 SACHET LUNCH TIME AT 12:00, 1 SACHET EVENING AT 18:00 DAILY FOR 90 DAYS
     Route: 048
     Dates: start: 20240619, end: 20240709
  17. DULCILARMES [Concomitant]
     Indication: Dry eye
     Dosage: 1 DROP IN THE MORNING AT 08:00, 1 DROP AT NOON AT 12:00, 1 DROP AT NIGHT 18:00 EVERY DAY FOR 90 DAYS
     Route: 047
     Dates: start: 20240619, end: 20240709
  18. DULCILARMES [Concomitant]
     Dosage: 1 DROP IN THE MORNING AT 08:00, 1 DROP AT NOON AT 12:00, 1 DROP AT NIGHT 18:00 EVERY DAY FOR 90 DAYS
     Route: 047
     Dates: start: 20240716, end: 20240807
  19. TRAMADOL HYDROCHLORIDE [Concomitant]
     Active Substance: TRAMADOL HYDROCHLORIDE
     Indication: Pain
     Dosage: 1 CAPSULE MORNING AT 08:00, 1 CAPSULE AT LUNCH TIME AT 12:00, 1 CAPSULE EVENING AT 18:00 DAILY FOR 9
     Route: 048
     Dates: start: 20240619, end: 20240709
  20. TRAMADOL HYDROCHLORIDE [Concomitant]
     Active Substance: TRAMADOL HYDROCHLORIDE
     Dosage: 1 CAPSULE MORNING AT 08:00, 1 CAPSULE AT LUNCH TIME AT 12:00, 1 CAPSULE EVENING AT 18:00 DAILY FOR 9
     Route: 048
     Dates: start: 20240716, end: 20240807
  21. POLYETHYLENE GLYCOLS [Concomitant]
     Active Substance: POLYETHYLENE GLYCOLS
     Indication: Constipation
     Dosage: 1 SACHET IN THE MORNING AT 08:00 EVERY DAY FOR 90 DAYS
     Route: 048
     Dates: start: 20240619, end: 20240709
  22. POLYETHYLENE GLYCOLS [Concomitant]
     Active Substance: POLYETHYLENE GLYCOLS
     Dosage: 1 SACHET IN THE MORNING AT 08:00 EVERY DAY FOR 90 DAYS
     Route: 048
     Dates: start: 20240716, end: 20240722
  23. PRIMPERAN [Concomitant]
     Active Substance: METOCLOPRAMIDE HYDROCHLORIDE
     Indication: Nausea
     Dosage: 1 TABLET MORNING AT 08:00, 1 TABLET LUNCH TIME AT 12:00, 1 TABLET EVENING AT 18:00 DAILY FOR 90 DAYS
     Route: 048
     Dates: start: 20240619, end: 20240709
  24. PRIMPERAN [Concomitant]
     Active Substance: METOCLOPRAMIDE HYDROCHLORIDE
     Indication: Vomiting
     Dosage: 1 TABLET MORNING AT 08:00, 1 TABLET LUNCH TIME AT 12:00, 1 TABLET EVENING AT 18:00 DAILY FOR 90 DAYS
     Route: 048
     Dates: start: 20240716, end: 20240807
  25. POTASSIUM BITARTRATE\SODIUM BICARBONATE [Concomitant]
     Active Substance: POTASSIUM BITARTRATE\SODIUM BICARBONATE
     Indication: Constipation
     Dosage: 1 SUPPOSITORY IN THE MORNING AT 08:00 EVERYDAY FOR 90 DAYS; IF NO STOOLS }3 DAYS
     Route: 054
     Dates: start: 20240619, end: 20240709
  26. POTASSIUM BITARTRATE\SODIUM BICARBONATE [Concomitant]
     Active Substance: POTASSIUM BITARTRATE\SODIUM BICARBONATE
     Dosage: 1 SUPPOSITORY IN THE MORNING AT 08:00 EVERYDAY FOR 90 DAYS; IF NO STOOLS }3 DAYS
     Route: 054
     Dates: start: 20240716, end: 20240807
  27. DIETARY SUPPLEMENT [Concomitant]
     Active Substance: DIETARY SUPPLEMENT
     Indication: Product used for unknown indication
     Dosage: 2 SCOOPS IN THE MORNING AT 08:00 EVERY DAY FOR 90 DAYS
     Route: 048
     Dates: start: 20240619, end: 20240709
  28. DIETARY SUPPLEMENT [Concomitant]
     Active Substance: DIETARY SUPPLEMENT
     Dosage: 2 SCOOPS IN THE MORNING AT 08:00 EVERY DAY FOR 90 DAYS
     Route: 048
     Dates: start: 20240716, end: 20240807
  29. CRESEMBA [Concomitant]
     Active Substance: ISAVUCONAZONIUM SULFATE
     Indication: Product used for unknown indication
     Dosage: 2 CAPSULES IN THE MORNING AT 08:00 EVERY DAY FOR 90 DAYS; 200 MG/DAY
     Route: 048
     Dates: start: 20240622, end: 20240709
  30. CRESEMBA [Concomitant]
     Active Substance: ISAVUCONAZONIUM SULFATE
     Dosage: 2 CAPSULES IN THE MORNING AT 08:00 EVERY DAY FOR 90 DAYS; 200 MG/DAY
     Route: 048
     Dates: start: 20240716, end: 20240807
  31. SODIUM CHLORIDE [Concomitant]
     Active Substance: SODIUM CHLORIDE
     Indication: Product used for unknown indication
     Dosage: DURATION OF INFUSION: 24 HOURS; FLOW RATE: 41.67 ML/HOUR
     Route: 058
     Dates: start: 20240704, end: 20240709
  32. SODIUM CHLORIDE [Concomitant]
     Active Substance: SODIUM CHLORIDE
     Dosage: DURATION OF INFUSION: 24 HOURS; FLOW RATE: 41.67 ML/HOUR
     Route: 058
     Dates: start: 20240716, end: 20240802
  33. VALACYCLOVIR HYDROCHLORIDE [Concomitant]
     Active Substance: VALACYCLOVIR HYDROCHLORIDE
     Indication: Renal impairment
     Dosage: 500 MG IN THE MORNING AT 08:00 EVERY DAY FOR 90 DAYS
     Route: 048
     Dates: start: 20240705, end: 20240709
  34. VALACYCLOVIR HYDROCHLORIDE [Concomitant]
     Active Substance: VALACYCLOVIR HYDROCHLORIDE
     Dosage: 500 MG IN THE MORNING AT 08:00 EVERY DAY FOR 90 DAYS
     Route: 048
     Dates: start: 20240716, end: 20240807
  35. MUCOMYST [Concomitant]
     Active Substance: ACETYLCYSTEINE
     Indication: Product used for unknown indication
     Dosage: 1 SACHET IN THE MORNING AT 08:00, 1 SACHET IN THE EVENING AT 18:00 DAILY FOR 28 DAYS
     Route: 048
     Dates: start: 20240704, end: 20240708
  36. BISOPROLOL [Concomitant]
     Active Substance: BISOPROLOL\BISOPROLOL FUMARATE
     Indication: Product used for unknown indication
     Dosage: 1 TABLET IN THE MORNING AT 08:00 EVERY DAY FOR 90 DAYS, DO NOT GIVE THIS WEEKEND, POINT MONDAY 8/JUL
     Route: 048
     Dates: start: 20240708, end: 20240709

REACTIONS (7)
  - Death [Fatal]
  - Cerebrovascular accident [Unknown]
  - Renal failure [Unknown]
  - Haemorrhage [Unknown]
  - Haematuria [Unknown]
  - Epistaxis [Unknown]
  - Influenza [Unknown]

NARRATIVE: CASE EVENT DATE: 20240712
